FAERS Safety Report 6713116-1 (Version None)
Quarter: 2010Q2

REPORT INFORMATION
  Report Type: 
  Country: None (occurrence: None)
  Receive Date: 20100503
  Receipt Date: 20091203
  Transmission Date: 20101027
  Serious: Yes (Life-Threatening)
  Sender: FDA-Public Use
  Company Number: SPV1-2009-02455

PATIENT
  Age: 10 Year
  Sex: Male

DRUGS (1)
  1. INTUNIV [Suspect]
     Indication: DRUG USE FOR UNKNOWN INDICATION
     Dosage: 2 MG, 1X/DAY:QD, ORAL
     Route: 048
     Dates: start: 20091031, end: 20090101

REACTIONS (4)
  - BRADYCARDIA [None]
  - HYPOTENSION [None]
  - LETHARGY [None]
  - PALLOR [None]
